FAERS Safety Report 8118213-4 (Version None)
Quarter: 2012Q1

REPORT INFORMATION
  Report Type: 
  Country: None (occurrence: None)
  Receive Date: 20120207
  Receipt Date: 20111208
  Transmission Date: 20120608
  Serious: Yes (Hospitalization)
  Sender: FDA-Public Use
  Company Number: DE-ROXANE LABORATORIES, INC.-2011-EU-00997GD

PATIENT
  Age: 16 Year
  Sex: Female

DRUGS (4)
  1. PROCARBAZINE HYDROCHLORIDE [Suspect]
     Indication: HODGKIN'S DISEASE STAGE II
  2. ADRIAMYCIN PFS [Concomitant]
     Indication: HODGKIN'S DISEASE STAGE II
  3. PREDNISONE TAB [Suspect]
     Indication: HODGKIN'S DISEASE STAGE II
  4. VINCRISTINE [Concomitant]
     Indication: HODGKIN'S DISEASE STAGE II

REACTIONS (7)
  - CONFUSIONAL STATE [None]
  - ACUTE PSYCHOSIS [None]
  - HALLUCINATION [None]
  - HALLUCINATION, AUDITORY [None]
  - PARANOIA [None]
  - SUICIDAL IDEATION [None]
  - DISORIENTATION [None]
